FAERS Safety Report 24397999 (Version 1)
Quarter: 2024Q4

REPORT INFORMATION
  Report Type: Spontaneous
  Country: FR (occurrence: FR)
  Receive Date: 20241004
  Receipt Date: 20241004
  Transmission Date: 20250114
  Serious: Yes (Hospitalization)
  Sender: TAKEDA
  Company Number: None

PATIENT
  Age: 38 Year
  Sex: Male

DRUGS (1)
  1. ICLUSIG [Suspect]
     Active Substance: PONATINIB\PONATINIB HYDROCHLORIDE
     Indication: Chronic myeloid leukaemia
     Dosage: 30 MILLIGRAM, QD
     Route: 048
     Dates: start: 202206, end: 202406

REACTIONS (2)
  - Central nervous system vasculitis [Not Recovered/Not Resolved]
  - Cerebral infarction [Not Recovered/Not Resolved]

NARRATIVE: CASE EVENT DATE: 20240401
